FAERS Safety Report 5333923-X (Version None)
Quarter: 2007Q2

REPORT INFORMATION
  Report Type: 
  Country: None (occurrence: None)
  Receive Date: 20070524
  Receipt Date: 20070512
  Transmission Date: 20071010
  Serious: Yes (Other)
  Sender: FDA-Public Use
  Company Number: US-PFIZER INC-2007016752

PATIENT
  Sex: Female
  Weight: 49.9 kg

DRUGS (6)
  1. SUTENT [Suspect]
     Indication: RENAL CELL CARCINOMA STAGE UNSPECIFIED
     Dates: start: 20070207, end: 20070302
  2. NEXIUM [Concomitant]
     Dosage: DAILY DOSE:40MG-FREQ:DAILY
  3. LIPITOR [Concomitant]
  4. TYLOX [Concomitant]
  5. STOOL SOFTENER [Concomitant]
     Dosage: FREQ:DAILY
  6. VITAMIN CAP [Concomitant]
     Dosage: FREQ:DAILY

REACTIONS (11)
  - ALANINE AMINOTRANSFERASE INCREASED [None]
  - APHASIA [None]
  - ASPARTATE AMINOTRANSFERASE INCREASED [None]
  - BLOOD ALKALINE PHOSPHATASE INCREASED [None]
  - CONFUSIONAL STATE [None]
  - HEPATITIS [None]
  - PRURITUS [None]
  - RASH [None]
  - RASH ERYTHEMATOUS [None]
  - THROMBOCYTOPENIA [None]
  - TRANSIENT ISCHAEMIC ATTACK [None]
